FAERS Safety Report 6331807-1 (Version None)
Quarter: 2009Q3

REPORT INFORMATION
  Report Type: 
  Country: None (occurrence: None)
  Receive Date: 20090826
  Receipt Date: 20090819
  Transmission Date: 20100115
  Serious: Yes (Life-Threatening, Hospitalization)
  Sender: FDA-Public Use
  Company Number: 2009JP005107

PATIENT
  Age: 35 Year
  Sex: Male

DRUGS (6)
  1. TACROLIMUS [Suspect]
     Indication: RENAL TRANSPLANT
     Dosage: 0.15 MG/KG,
  2. PREDNISOLONE [Suspect]
     Indication: RENAL TRANSPLANT
     Dosage: 10 MG, ORAL
     Route: 048
  3. MYCOPHENOLATE MOFETIL [Suspect]
     Indication: RENAL TRANSPLANT
     Dosage: 2 G,
  4. METHYLPREDNISOLONE [Suspect]
     Indication: RENAL TRANSPLANT
     Dosage: 580 MG, IV NOS; 480 MG, IV NOS; 240 MG, IV NOS; 360 MG, IV BOLUS
  5. METHYLPREDNISOLONE [Suspect]
     Indication: RENAL TRANSPLANT
     Dosage: 580 MG, IV NOS; 480 MG, IV NOS; 240 MG, IV NOS; 360 MG, IV BOLUS
  6. METHYLPREDNISOLONE [Suspect]
     Indication: RENAL TRANSPLANT
     Dosage: 580 MG, IV NOS; 480 MG, IV NOS; 240 MG, IV NOS; 360 MG, IV BOLUS

REACTIONS (6)
  - ABDOMINAL PAIN [None]
  - ASPERGILLOSIS [None]
  - CULTURE POSITIVE [None]
  - HYPOTENSION [None]
  - RENAL ANEURYSM [None]
  - VASCULAR PSEUDOANEURYSM RUPTURED [None]
